FAERS Safety Report 7862892-3 (Version None)
Quarter: 2011Q4

REPORT INFORMATION
  Report Type: 
  Country: None (occurrence: None)
  Receive Date: 20111027
  Receipt Date: 20101118
  Transmission Date: 20120403
  Serious: No
  Sender: FDA-Public Use
  Company Number: US-AMGEN-USASP2010005777

PATIENT
  Age: 66 Year
  Sex: Female

DRUGS (1)
  1. ENBREL [Suspect]
     Indication: RHEUMATOID ARTHRITIS
     Dates: start: 20091001, end: 20101101

REACTIONS (10)
  - INJECTION SITE HAEMATOMA [None]
  - INJECTION SITE RASH [None]
  - INJECTION SITE PAIN [None]
  - JOINT SWELLING [None]
  - INFECTION [None]
  - LATEX ALLERGY [None]
  - ARTHRALGIA [None]
  - NODULE [None]
  - THERAPEUTIC RESPONSE DECREASED [None]
  - OROPHARYNGEAL PAIN [None]
